FAERS Safety Report 11759730 (Version 1)
Quarter: 2015Q4

REPORT INFORMATION
  Report Type: Spontaneous
  Country: US (occurrence: US)
  Receive Date: 20151120
  Receipt Date: 20151120
  Transmission Date: 20160304
  Serious: No
  Sender: FDA-Public Use
  Company Number: US-JNJFOC-20151012222

PATIENT
  Age: 50 Year
  Sex: Female
  Weight: 72.58 kg

DRUGS (5)
  1. SITOSTEROL [Concomitant]
     Indication: NUTRITIONAL SUPPLEMENTATION
     Route: 065
  2. WOMENS ROGAINE UNSCENTED [Suspect]
     Active Substance: MINOXIDIL
     Indication: ALOPECIA
     Dosage: 1 CAPFUL
     Route: 061
     Dates: end: 20151014
  3. AMINO ACIDS [Concomitant]
     Active Substance: AMINO ACIDS
     Indication: NUTRITIONAL SUPPLEMENTATION
     Route: 065
  4. BIOTIN [Concomitant]
     Active Substance: BIOTIN
     Indication: NUTRITIONAL SUPPLEMENTATION
     Route: 065
  5. WOMENS ROGAINE UNSCENTED [Suspect]
     Active Substance: MINOXIDIL
     Route: 061

REACTIONS (4)
  - Product formulation issue [Unknown]
  - Product quality issue [Unknown]
  - Product use issue [Recovering/Resolving]
  - Alopecia [Recovering/Resolving]
